FAERS Safety Report 5944918-7 (Version None)
Quarter: 2008Q4

REPORT INFORMATION
  Report Type: 
  Country: None (occurrence: None)
  Receive Date: 20081107
  Receipt Date: 20081106
  Transmission Date: 20090506
  Serious: Yes (Death, Hospitalization)
  Sender: FDA-Public Use
  Company Number: US-RB-005775-08

PATIENT
  Sex: Female

DRUGS (1)
  1. SUBOXONE [Suspect]
     Route: 060
     Dates: start: 20070919, end: 20080801

REACTIONS (3)
  - RESPIRATORY FAILURE [None]
  - SEPSIS [None]
  - URINARY TRACT INFECTION [None]
